FAERS Safety Report 22165832 (Version 1)
Quarter: 2023Q2

REPORT INFORMATION
  Report Type: Spontaneous
  Country: IT (occurrence: IT)
  Receive Date: 20230403
  Receipt Date: 20230403
  Transmission Date: 20230721
  Serious: Yes (Death, Hospitalization)
  Sender: FDA-Public Use
  Company Number: IT-drreddys-LIT/ITL/23/0163114

PATIENT
  Age: 46 Year
  Sex: Male

DRUGS (2)
  1. PEMETREXED [Suspect]
     Active Substance: PEMETREXED
     Indication: Non-small cell lung cancer
     Dosage: 500 MG/MQ EVERY 3 WEEKS, AS FIRST-LINE THERAPY UP TO FOUR COURSES
  2. CISPLATIN [Suspect]
     Active Substance: CISPLATIN
     Indication: Non-small cell lung cancer
     Dosage: 75 MG/MQ EVERY 3 WEEKS WERE ADMINISTERED AS FIRST-LINE THERAPY UP TO FOUR COURSES

REACTIONS (3)
  - Non-small cell lung cancer [Fatal]
  - General physical health deterioration [Fatal]
  - Treatment failure [Unknown]
